FAERS Safety Report 8522030-0 (Version None)
Quarter: 2012Q3

REPORT INFORMATION
  Report Type: 
  Country: None (occurrence: None)
  Receive Date: 20120719
  Receipt Date: 20120710
  Transmission Date: 20120928
  Serious: Yes (Hospitalization, Other)
  Sender: FDA-Public Use
  Company Number: US-JNJFOC-20120706758

PATIENT
  Sex: Female
  Weight: 50.8 kg

DRUGS (10)
  1. LORTAB [Concomitant]
     Indication: ARTHRALGIA
     Route: 048
  2. FOSAMAX [Concomitant]
     Indication: OSTEOPOROSIS
     Route: 048
  3. GOLIMUMAB [Suspect]
     Route: 058
     Dates: start: 20110216
  4. SYNTHROID [Concomitant]
     Indication: HYPOTHYROIDISM
     Route: 048
  5. IRON [Concomitant]
     Indication: IRON DEFICIENCY ANAEMIA
     Route: 048
  6. GOLIMUMAB [Suspect]
     Indication: RHEUMATOID ARTHRITIS
     Route: 058
     Dates: start: 20120618
  7. METHOTREXATE [Concomitant]
     Indication: RHEUMATOID ARTHRITIS
     Route: 048
  8. PREDNISONE [Concomitant]
     Indication: RHEUMATOID ARTHRITIS
     Route: 048
  9. KLONOPIN [Concomitant]
     Indication: DEPRESSION
     Route: 048
  10. PROZAC [Concomitant]
     Indication: DEPRESSION
     Route: 048

REACTIONS (2)
  - ARTHRALGIA [None]
  - HEPATITIS C [None]
